FAERS Safety Report 10312797 (Version 1)
Quarter: 2014Q3

REPORT INFORMATION
  Report Type: Spontaneous
  Country: US (occurrence: None)
  Receive Date: 20140717
  Receipt Date: 20140717
  Transmission Date: 20150326
  Serious: Yes (Hospitalization)
  Sender: FDA-Public Use
  Company Number: None

PATIENT
  Age: 2 Month
  Sex: Female
  Weight: 17.24 kg

DRUGS (1)
  1. MIRALAX [Suspect]
     Active Substance: POLYETHYLENE GLYCOL 3350
     Indication: CONSTIPATION
     Route: 048
     Dates: start: 20040601

REACTIONS (4)
  - Autonomic neuropathy [None]
  - Unevaluable event [None]
  - Cardiac disorder [None]
  - Nervous system disorder [None]

NARRATIVE: CASE EVENT DATE: 20131001
